FAERS Safety Report 4847954-7 (Version None)
Quarter: 2005Q4

REPORT INFORMATION
  Report Type: 
  Country: None (occurrence: None)
  Receive Date: 20051206
  Receipt Date: 20051122
  Transmission Date: 20060501
  Serious: Yes (Hospitalization)
  Sender: FDA-Public Use
  Company Number: CLOF-10164

PATIENT
  Age: 50 Year
  Sex: Male

DRUGS (9)
  1. CLOFARABINE [Suspect]
     Indication: PANCREATIC CARCINOMA
     Dosage: 232 MG IV
     Route: 042
     Dates: start: 20051114
  2. PANCREASE [Concomitant]
  3. TEMAZEPAM [Concomitant]
  4. HUMALOG [Concomitant]
  5. PROPO N/APAP [Concomitant]
  6. DURAGESIC-100 [Concomitant]
  7. REGLAN [Concomitant]
  8. ATIVAN [Concomitant]
  9. CELEBREX [Concomitant]

REACTIONS (5)
  - DEHYDRATION [None]
  - DIARRHOEA [None]
  - ENDOSCOPY ABNORMAL [None]
  - NAUSEA [None]
  - VOMITING [None]
